FAERS Safety Report 7003572 (Version 1)
Quarter: 2020Q3

REPORT INFORMATION
  Report Type: Report from Study
  Country: US (occurrence: RU)
  Receive Date: 20090527
  Receipt Date: 20090527
  Transmission Date: 20201105
  Serious: Yes (Death)
  Sender: FDA-Public Use
  Company Number: RU-ROCHE-462043

PATIENT
  Age: 66 Year
  Sex: Female
  Weight: 76.1 kg

DRUGS (8)
  1. ACETYLSALICYLIC ACID [Concomitant]
     Active Substance: ASPIRIN
     Dates: start: 200505, end: 20051225
  2. CEREBROLYSIN [Concomitant]
     Active Substance: CEREBROLYSIN
     Dates: start: 20051219, end: 20051229
  3. VITAMIN D2 [Concomitant]
     Active Substance: ERGOCALCIFEROL
     Route: 048
     Dates: start: 200404
  4. IBANDRONIC ACID. [Suspect]
     Active Substance: IBANDRONIC ACID
     Indication: OSTEOPOROSIS POSTMENOPAUSAL
     Route: 048
     Dates: start: 20050727, end: 20060427
  5. PLACEBO [Suspect]
     Active Substance: UNSPECIFIED INGREDIENT
     Indication: OSTEOPOROSIS POSTMENOPAUSAL
     Route: 048
     Dates: start: 20050728, end: 20060504
  6. VINPOCETINE [Concomitant]
     Active Substance: VINPOCETINE
     Dates: start: 200506, end: 20051030
  7. CALCIUM [Concomitant]
     Active Substance: CALCIUM
     Route: 048
     Dates: start: 200404
  8. ENALAPRIL [Concomitant]
     Active Substance: ENALAPRIL
     Dates: start: 200503

REACTIONS (1)
  - Death [Fatal]

NARRATIVE: CASE EVENT DATE: 20060101
